FAERS Safety Report 23447081 (Version 1)
Quarter: 2024Q1

REPORT INFORMATION
  Report Type: Spontaneous
  Country: IE (occurrence: IE)
  Receive Date: 20240126
  Receipt Date: 20240126
  Transmission Date: 20240410
  Serious: Yes (Other)
  Sender: FDA-Public Use
  Company Number: IE-002147023-PHFR2004IE04665

PATIENT
  Sex: Female

DRUGS (1)
  1. CLOZARIL [Suspect]
     Active Substance: CLOZAPINE
     Indication: Schizophrenia
     Dosage: 400 MILLIGRAM, QD, 400MG/DAY, FORM: TABLETS
     Route: 048
     Dates: start: 20020912

REACTIONS (5)
  - Foetal hypokinesia [Unknown]
  - Hypotension [Unknown]
  - Fatigue [Unknown]
  - Syncope [Unknown]
  - Exposure during pregnancy [Unknown]
